FAERS Safety Report 21917014 (Version 2)
Quarter: 2023Q1

REPORT INFORMATION
  Report Type: Report from Study
  Country: GB (occurrence: GB)
  Receive Date: 20230126
  Receipt Date: 20230308
  Transmission Date: 20230417
  Serious: Yes (Hospitalization)
  Sender: FDA-Public Use
  Company Number: GB-002147023-NVSC2022GB287230

PATIENT
  Sex: Male

DRUGS (2)
  1. COSENTYX [Suspect]
     Active Substance: SECUKINUMAB
     Indication: Psoriasis
     Dosage: 300 MG, QW (ON WEEKS 0,1,2,3 AND 4 FOLLOWED BY ONCE MONTHLY)
     Route: 058
     Dates: start: 20221109
  2. COSENTYX [Suspect]
     Active Substance: SECUKINUMAB
     Dosage: 300 MG, Q2W
     Route: 058
     Dates: start: 2022

REACTIONS (7)
  - Swelling [Unknown]
  - Rash macular [Unknown]
  - Generalised oedema [Unknown]
  - Abdominal distension [Unknown]
  - Infection [Unknown]
  - Device leakage [Unknown]
  - Device defective [Unknown]
